FAERS Safety Report 8320295-1 (Version None)
Quarter: 2012Q2

REPORT INFORMATION
  Report Type: 
  Country: None (occurrence: None)
  Receive Date: 20120426
  Receipt Date: 20120426
  Transmission Date: 20120825
  Serious: Yes (Disabling)
  Sender: FDA-Public Use
  Company Number: None

PATIENT
  Sex: Male
  Weight: 63.5036 kg

DRUGS (5)
  1. ZYPREXA [Suspect]
     Indication: ANGER
     Dosage: 10 MG ? 1X/DAY P.O. 6 OR 8 OF '09 TIL 11-11
     Route: 048
  2. DEPAKOTE [Suspect]
     Dosage: 500 MG ? 1 X / DAY P.O.  6 OR 8 OF '09 TIL 11-'11
  3. FISH OIL [Concomitant]
  4. VITAMIN C [Concomitant]
  5. MULTI-VITAMIN [Concomitant]

REACTIONS (4)
  - BREAST MASS [None]
  - RASH ERYTHEMATOUS [None]
  - GAIT DISTURBANCE [None]
  - BONE DISORDER [None]
